FAERS Safety Report 12618806 (Version 4)
Quarter: 2017Q1

REPORT INFORMATION
  Report Type: Spontaneous
  Country: US (occurrence: US)
  Receive Date: 20160803
  Receipt Date: 20170223
  Transmission Date: 20170428
  Serious: No
  Sender: FDA-Public Use
  Company Number: US-LUNDBECK-DKLU2016533

PATIENT
  Sex: Female

DRUGS (1)
  1. NORTHERA [Suspect]
     Active Substance: DROXIDOPA
     Indication: AUTONOMIC NEUROPATHY
     Dosage: SCHEDULE C
     Route: 065
     Dates: start: 20160611

REACTIONS (10)
  - Oedema peripheral [Unknown]
  - Heart rate increased [Unknown]
  - Sluggishness [Unknown]
  - Somnolence [Unknown]
  - Stress [Unknown]
  - Palpitations [Unknown]
  - Drug dose omission [Unknown]
  - Fatigue [Unknown]
  - Dyspnoea [Unknown]
  - Initial insomnia [Unknown]
